FAERS Safety Report 23661885 (Version 1)
Quarter: 2024Q1

REPORT INFORMATION
  Report Type: Spontaneous
  Country: US (occurrence: US)
  Receive Date: 20240322
  Receipt Date: 20240322
  Transmission Date: 20240410
  Serious: No
  Sender: FDA-Public Use
  Company Number: US-AMNEAL PHARMACEUTICALS-2023-AMRX-00784

PATIENT
  Sex: Female

DRUGS (1)
  1. ESTRADIOL TRANSDERMAL SYSTEM [Suspect]
     Active Substance: ESTRADIOL
     Indication: Menopausal symptoms
     Dosage: UNK
     Route: 062

REACTIONS (8)
  - Brain fog [Unknown]
  - Alopecia [Unknown]
  - Menopausal symptoms [Unknown]
  - Dry skin [Unknown]
  - Fatigue [Unknown]
  - Hot flush [Unknown]
  - Drug ineffective [Unknown]
  - Product substitution issue [Unknown]
